FAERS Safety Report 6466674-9 (Version None)
Quarter: 2009Q4

REPORT INFORMATION
  Report Type: 
  Country: None (occurrence: None)
  Receive Date: 20091202
  Receipt Date: 20091123
  Transmission Date: 20100525
  Serious: Yes (Death, Hospitalization, Other)
  Sender: FDA-Public Use
  Company Number: US-TEVA-216135USA

PATIENT
  Age: 61 Year
  Sex: Male

DRUGS (3)
  1. FLUOROURACIL [Suspect]
     Indication: COLORECTAL CANCER
  2. FOLINIC ACID [Suspect]
     Indication: COLORECTAL CANCER
  3. OXALIPLATIN [Suspect]
     Indication: COLORECTAL CANCER

REACTIONS (4)
  - BRONCHOPNEUMONIA [None]
  - DIFFUSE ALVEOLAR DAMAGE [None]
  - PLEURAL EFFUSION [None]
  - PULMONARY FIBROSIS [None]
